FAERS Safety Report 23534741 (Version 1)
Quarter: 2024Q1

REPORT INFORMATION
  Report Type: Report from Study
  Country: US (occurrence: US)
  Receive Date: 20240217
  Receipt Date: 20240217
  Transmission Date: 20240410
  Serious: Yes (Other)
  Sender: FDA-Public Use
  Company Number: US-ABBVIE-5639166

PATIENT
  Age: 76 Year
  Sex: Female

DRUGS (1)
  1. SKYRIZI [Suspect]
     Active Substance: RISANKIZUMAB-RZAA
     Indication: Psoriasis
     Route: 058
     Dates: start: 20230306

REACTIONS (5)
  - Precancerous skin lesion [Unknown]
  - Fatigue [Unknown]
  - Pain [Unknown]
  - Osteoarthritis [Unknown]
  - Medical device implantation [Unknown]

NARRATIVE: CASE EVENT DATE: 20230915
